FAERS Safety Report 10008655 (Version 1)
Quarter: 2014Q1

REPORT INFORMATION
  Report Type: Spontaneous
  Country: US (occurrence: US)
  Receive Date: 20140312
  Receipt Date: 20140312
  Transmission Date: 20141002
  Serious: No
  Sender: FDA-Public Use
  Company Number: US-INCYTE CORPORATION-2012IN000517

PATIENT
  Age: 73 Year
  Sex: Female

DRUGS (6)
  1. JAKAFI [Suspect]
     Indication: MYELOFIBROSIS
     Dosage: 20 MG, BID
     Route: 048
  2. LATANOPROST [Concomitant]
     Indication: GLAUCOMA
     Dosage: DROPS EACH EYE AT BED TIME
     Route: 047
  3. PROTONIX [Concomitant]
     Dosage: UNK
  4. TRAVATAN [Concomitant]
     Dosage: UNK
  5. HYDROCHLOROTHIAZIDE [Concomitant]
     Dosage: ON HOLD
  6. IBUPROFEN [Concomitant]
     Dosage: UNK, PRN

REACTIONS (1)
  - Back pain [Not Recovered/Not Resolved]
